FAERS Safety Report 11029949 (Version 2)
Quarter: 2015Q2

REPORT INFORMATION
  Report Type: Report from Study
  Country: US (occurrence: US)
  Receive Date: 20150415
  Receipt Date: 20150514
  Transmission Date: 20150821
  Serious: Yes (Hospitalization, Other)
  Sender: FDA-Public Use
  Company Number: US-BIOGENIDEC-2015BI044863

PATIENT
  Age: 57 Year
  Sex: Female
  Weight: 88 kg

DRUGS (20)
  1. ZOLMITRIPTAN. [Concomitant]
     Active Substance: ZOLMITRIPTAN
     Route: 048
  2. DOCUSATE [Concomitant]
     Active Substance: DOCUSATE
  3. MOMETASONE [Concomitant]
     Active Substance: MOMETASONE
  4. PRAVASTATIN [Concomitant]
     Active Substance: PRAVASTATIN\PRAVASTATIN SODIUM
     Route: 048
  5. LOSARTAN-HYDROCHLOROTHIAZIDE [Concomitant]
     Route: 048
  6. NAPROXEN. [Concomitant]
     Active Substance: NAPROXEN
     Route: 048
  7. FLUTICASONE [Concomitant]
     Active Substance: FLUTICASONE\FLUTICASONE PROPIONATE
  8. LORATADINE. [Concomitant]
     Active Substance: LORATADINE
     Route: 048
  9. CHOLECALCIFEROL [Concomitant]
     Active Substance: CHOLECALCIFEROL
  10. CITALOPRAM [Concomitant]
     Active Substance: CITALOPRAM HYDROBROMIDE
     Route: 048
  11. VALACYCLOVIR [Concomitant]
     Active Substance: VALACYCLOVIR HYDROCHLORIDE
     Route: 048
  12. LOSARTAN-HYDROCHLOROTHIAZIDE [Concomitant]
     Route: 048
  13. BLACK COHOSH [Concomitant]
     Active Substance: BLACK COHOSH
     Route: 048
  14. TECFIDERA [Suspect]
     Active Substance: DIMETHYL FUMARATE
     Indication: MULTIPLE SCLEROSIS
     Route: 048
     Dates: start: 20130514
  15. TECFIDERA [Suspect]
     Active Substance: DIMETHYL FUMARATE
     Indication: MULTIPLE SCLEROSIS
     Route: 048
     Dates: end: 20141023
  16. OMPERAZOLE [Concomitant]
     Active Substance: OMEPRAZOLE
  17. SUMATRIPTAN. [Concomitant]
     Active Substance: SUMATRIPTAN
     Route: 048
  18. OMEGA-3 FATTY ACID [Concomitant]
     Active Substance: OMEGA-3 FATTY ACIDS
     Route: 048
  19. ARMODAFINIL. [Concomitant]
     Active Substance: ARMODAFINIL
     Route: 048
  20. ALPRAZOLAM. [Concomitant]
     Active Substance: ALPRAZOLAM
     Route: 048

REACTIONS (6)
  - Dyspepsia [Unknown]
  - Leiomyosarcoma metastatic [Not Recovered/Not Resolved]
  - Lymphopenia [Unknown]
  - Constipation [Unknown]
  - Prescribed underdose [Recovered/Resolved]
  - Anal squamous cell carcinoma [Unknown]

NARRATIVE: CASE EVENT DATE: 2014
